FAERS Safety Report 13933393 (Version 2)
Quarter: 2017Q4

REPORT INFORMATION
  Report Type: Spontaneous
  Country: DE (occurrence: DE)
  Receive Date: 20170904
  Receipt Date: 20171017
  Transmission Date: 20180320
  Serious: Yes (Hospitalization, Other)
  Sender: FDA-Public Use
  Company Number: PHHY2017DE126398

PATIENT
  Age: 51 Year
  Sex: Female
  Weight: 76 kg

DRUGS (3)
  1. ALLOPURINOL. [Concomitant]
     Active Substance: ALLOPURINOL
     Indication: GOUT
     Dosage: 300 MG, QD
     Route: 048
     Dates: start: 20170725
  2. PANTOPRAZOLE [Concomitant]
     Active Substance: PANTOPRAZOLE
     Indication: PROPHYLAXIS AGAINST GASTROINTESTINAL ULCER
     Dosage: 40 MG, QD
     Route: 048
     Dates: start: 20170821
  3. SECUKINUMAB. [Suspect]
     Active Substance: SECUKINUMAB
     Indication: PSORIATIC ARTHROPATHY
     Dosage: 300 MG, QW
     Route: 058
     Dates: start: 20170725

REACTIONS (13)
  - Spinal pain [Unknown]
  - Anuria [Unknown]
  - Diarrhoea [Recovered/Resolved]
  - Dehydration [Unknown]
  - Pyrexia [Recovered/Resolved]
  - Flank pain [Unknown]
  - Abdominal pain [Unknown]
  - Gastrointestinal wall thickening [Unknown]
  - Rectal lesion [Unknown]
  - C-reactive protein increased [Unknown]
  - Acute kidney injury [Unknown]
  - Enterocolitis [Recovered/Resolved]
  - Renal impairment [Recovered/Resolved]

NARRATIVE: CASE EVENT DATE: 20170809
